FAERS Safety Report 5758913-4 (Version None)
Quarter: 2008Q2

REPORT INFORMATION
  Report Type: 
  Country: None (occurrence: None)
  Receive Date: 20080603
  Receipt Date: 20080603
  Transmission Date: 20081010
  Serious: Yes (Hospitalization, Other)
  Sender: FDA-Public Use
  Company Number: None

PATIENT
  Age: 43 Year
  Sex: Female
  Weight: 52.1637 kg

DRUGS (2)
  1. METHADONE HCL [Suspect]
     Dosage: SL
     Route: 060
  2. SUBUTEX [Suspect]
     Dosage: SL
     Route: 060

REACTIONS (14)
  - APPLICATION SITE BURN [None]
  - BLOOD PRESSURE DECREASED [None]
  - BLOOD PRESSURE INCREASED [None]
  - DRUG WITHDRAWAL SYNDROME [None]
  - EATING DISORDER [None]
  - EYE HAEMORRHAGE [None]
  - FEAR OF DISEASE [None]
  - HEADACHE [None]
  - HEART RATE DECREASED [None]
  - HYPERSENSITIVITY [None]
  - INSOMNIA [None]
  - LENTIGO [None]
  - PAIN [None]
  - SPINAL DISORDER [None]
